FAERS Safety Report 17804608 (Version 2)
Quarter: 2021Q2

REPORT INFORMATION
  Report Type: Spontaneous
  Country: US (occurrence: US)
  Receive Date: 20200519
  Receipt Date: 20210514
  Transmission Date: 20210716
  Serious: No
  Sender: FDA-Public Use
  Company Number: US-SUN PHARMACEUTICAL INDUSTRIES LTD-2019R1-223289

PATIENT
  Sex: Female
  Weight: 106.58 kg

DRUGS (1)
  1. ILUMYA [Suspect]
     Active Substance: TILDRAKIZUMAB-ASMN
     Indication: PSORIASIS
     Dosage: 100 MILLIGRAM (ON WEEK 4 THEN EVERY 12WKS)
     Route: 058
     Dates: start: 2019

REACTIONS (4)
  - Arthralgia [Unknown]
  - Product administration interrupted [Unknown]
  - Drug ineffective [Unknown]
  - Treatment failure [Unknown]

NARRATIVE: CASE EVENT DATE: 2019
